FAERS Safety Report 10280190 (Version 1)
Quarter: 2014Q3

REPORT INFORMATION
  Report Type: Spontaneous
  Country: US (occurrence: None)
  Receive Date: 20140701
  Receipt Date: 20140701
  Transmission Date: 20150326
  Serious: Yes (Life-Threatening, Hospitalization, Disabling, Other)
  Sender: FDA-Public Use
  Company Number: None

PATIENT
  Age: 19 Year
  Sex: Male
  Weight: 61.24 kg

DRUGS (1)
  1. RISPERDAL [Suspect]
     Active Substance: RISPERIDONE
     Indication: SCHIZOPHRENIA
     Dosage: 30 TWICE DAILY TAKEN BY MOUTH
     Route: 048
     Dates: start: 20060713, end: 20120620

REACTIONS (7)
  - Migraine [None]
  - Weight increased [None]
  - Cerebrovascular accident [None]
  - Arthralgia [None]
  - Economic problem [None]
  - Hypersensitivity [None]
  - Bone loss [None]

NARRATIVE: CASE EVENT DATE: 20060713
